FAERS Safety Report 17043486 (Version 1)
Quarter: 2019Q4

REPORT INFORMATION
  Report Type: Spontaneous
  Country: US (occurrence: US)
  Receive Date: 20191118
  Receipt Date: 20191118
  Transmission Date: 20200122
  Serious: No
  Sender: FDA-Public Use
  Company Number: US-THERAPEUTICSMD-2019TMD02855

PATIENT
  Age: 56 Year
  Sex: Female
  Weight: 63.49 kg

DRUGS (22)
  1. DHEA [Concomitant]
     Active Substance: PRASTERONE
  2. GLUTATHIONE [Concomitant]
     Active Substance: GLUTATHIONE
  3. NAC [Concomitant]
     Active Substance: ACETYLCYSTEINE
  4. BIJUVA [Suspect]
     Active Substance: ESTRADIOL\PROGESTERONE
     Indication: HOT FLUSH
     Dosage: 1 CAPSULES, 1X/DAY AT NIGHT
     Route: 048
     Dates: start: 20190809, end: 20190821
  5. ZINC. [Concomitant]
     Active Substance: ZINC
  6. VITAMIN C [Concomitant]
     Active Substance: ASCORBIC ACID
  7. MILK THISTLE [Concomitant]
     Active Substance: DIETARY SUPPLEMENT\HERBALS\MILK THISTLE
  8. PROBIOTIC [Concomitant]
     Active Substance: PROBIOTICS NOS
  9. VITAMIN B [Concomitant]
     Active Substance: VITAMIN B
  10. MAGNESIUM [Concomitant]
     Active Substance: MAGNESIUM
  11. DIM [Concomitant]
  12. DIGESTIVE ENZYMES [Concomitant]
     Active Substance: UNSPECIFIED INGREDIENT
  13. PSYLLIUM SEED [Concomitant]
  14. BERBERINE [Concomitant]
     Active Substance: BERBERINE
  15. VITAMIN E [Concomitant]
     Active Substance: .ALPHA.-TOCOPHEROL
  16. CURCUMIN [Concomitant]
     Active Substance: CURCUMIN
  17. COQ 10 [Concomitant]
     Active Substance: UBIDECARENONE
  18. PREGNENOLONE [Concomitant]
     Active Substance: PREGNENOLONE
  19. DAILY MULTIVITAMIN [Concomitant]
     Active Substance: VITAMINS
  20. VITAMIN D [Concomitant]
     Active Substance: VITAMIN D NOS
  21. OLIVE LEAF EXTRACT [Concomitant]
  22. FISH OIL [Concomitant]
     Active Substance: FISH OIL

REACTIONS (4)
  - Dyspepsia [Not Recovered/Not Resolved]
  - Headache [Not Recovered/Not Resolved]
  - Off label use [Not Recovered/Not Resolved]
  - Diarrhoea [Not Recovered/Not Resolved]

NARRATIVE: CASE EVENT DATE: 201908
